FAERS Safety Report 4298516-4 (Version None)
Quarter: 2004Q1

REPORT INFORMATION
  Report Type: 
  Country: None (occurrence: None)
  Receive Date: 20040126
  Receipt Date: 20031022
  Transmission Date: 20041129
  Serious: No
  Sender: FDA-Public Use
  Company Number: USA031050707

PATIENT
  Age: 8 Year
  Sex: Male
  Weight: 24 kg

DRUGS (3)
  1. STRATTERA [Suspect]
     Indication: ATTENTION DEFICIT/HYPERACTIVITY DISORDER
     Dosage: 40 MG/IN THE MORNING
     Dates: start: 20030101
  2. CLONIDINE [Concomitant]
  3. ADDERALL [Concomitant]

REACTIONS (5)
  - ABNORMAL BEHAVIOUR [None]
  - DRUG INEFFECTIVE [None]
  - PRESCRIBED OVERDOSE [None]
  - SOMNOLENCE [None]
  - WEIGHT INCREASED [None]
